FAERS Safety Report 7119317-5 (Version None)
Quarter: 2010Q4

REPORT INFORMATION
  Report Type: 
  Country: None (occurrence: None)
  Receive Date: 20101123
  Receipt Date: 20101119
  Transmission Date: 20110411
  Serious: No
  Sender: FDA-Public Use
  Company Number: US-TEVA-256133USA

PATIENT
  Age: 37 Year
  Sex: Female

DRUGS (4)
  1. ALBUTEROL SULFATE AUTOHALER [Suspect]
     Indication: ASTHMA
     Route: 055
     Dates: start: 20100101
  2. CICLESONIDE [Suspect]
     Indication: ASTHMA
     Dosage: 80 UG
     Route: 055
     Dates: start: 20100101
  3. HYDROXYCHLOROQUINE SULFATE [Concomitant]
  4. VITAMINS [Concomitant]

REACTIONS (2)
  - HEADACHE [None]
  - INCREASED UPPER AIRWAY SECRETION [None]
